FAERS Safety Report 25373803 (Version 1)
Quarter: 2025Q2

REPORT INFORMATION
  Report Type: Spontaneous
  Country: IR (occurrence: IR)
  Receive Date: 20250529
  Receipt Date: 20250529
  Transmission Date: 20250717
  Serious: Yes (Hospitalization)
  Sender: NOVARTIS
  Company Number: IR-002147023-NVSC2025IR085651

PATIENT
  Age: 39 Year
  Sex: Female
  Weight: 60 kg

DRUGS (4)
  1. JADENU [Suspect]
     Active Substance: DEFERASIROX
     Indication: Thalassaemia
     Route: 065
     Dates: start: 2018
  2. JADENU [Suspect]
     Active Substance: DEFERASIROX
     Dosage: UNK, QD (ONCE DAILY FOR THE FIRST WEEK)
     Route: 065
  3. JADENU [Suspect]
     Active Substance: DEFERASIROX
     Dosage: UNK, BID (TWICE DAILY FOR THE SECOND WEEK)
     Route: 065
  4. JADENU [Suspect]
     Active Substance: DEFERASIROX
     Dosage: 1080 MG, TID (TWO MONTHS AGO, THREE TIMES A DAY FOR THE THIRD WEEK)
     Route: 048
     Dates: end: 202505

REACTIONS (2)
  - Haemoglobin decreased [Not Recovered/Not Resolved]
  - Pyrexia [Recovered/Resolved with Sequelae]

NARRATIVE: CASE EVENT DATE: 20250501
